FAERS Safety Report 5169910-4 (Version None)
Quarter: 2006Q4

REPORT INFORMATION
  Report Type: 
  Country: None (occurrence: None)
  Receive Date: 20061212
  Receipt Date: 20051018
  Transmission Date: 20070319
  Serious: No
  Sender: FDA-Public Use
  Company Number: US-ELI_LILLY_AND_COMPANY-USA0510111273

PATIENT
  Age: 61 Year
  Sex: Male

DRUGS (12)
  1. LOTREL [Concomitant]
     Dosage: UNK MG, UNK
  2. AVAPRO [Concomitant]
     Dosage: UNK MG, UNK
  3. THYROXIN [Concomitant]
     Dosage: UNK MG, UNK
  4. CYMBALTA [Suspect]
     Indication: DEPRESSION
     Dosage: 20 MG, 2/D
     Dates: start: 20050101, end: 20050801
  5. CYMBALTA [Suspect]
     Dosage: 20 MG, DAILY (1/D)
     Dates: start: 20050801, end: 20060601
  6. CYMBALTA [Suspect]
     Dosage: 20 MG, DAILY (1/D)
     Route: 048
     Dates: start: 20061001
  7. INSULIN [Concomitant]
     Indication: DIABETES MELLITUS
     Dosage: UNK U, UNK
  8. AVANDIA [Concomitant]
     Indication: DIABETES MELLITUS
     Dosage: UNK MG, UNKNOWN
  9. SYNTHROID [Concomitant]
     Indication: HYPOTHYROIDISM
     Dosage: UNK UG, UNKNOWN
  10. PREVACID [Concomitant]
     Indication: NAUSEA
     Dosage: UNK MG, UNK
  11. LISINOPRIL [Concomitant]
     Indication: BLOOD PRESSURE
     Dosage: UNK, UNKNOWN
  12. ASPIRIN [Concomitant]
     Dosage: UNK, UNKNOWN

REACTIONS (15)
  - ANAEMIA [None]
  - DRUG CHEMICAL INCOMPATIBILITY [None]
  - DRUG INEFFECTIVE [None]
  - DYSPHONIA [None]
  - DYSPNOEA [None]
  - ERUCTATION [None]
  - FATIGUE [None]
  - GASTRIC DISORDER [None]
  - INSOMNIA [None]
  - IRRITABILITY [None]
  - LIVER DISORDER [None]
  - MULTIPLE ALLERGIES [None]
  - PRURITUS [None]
  - RESPIRATORY RATE INCREASED [None]
  - SOMNOLENCE [None]
